FAERS Safety Report 25356056 (Version 1)
Quarter: 2025Q2

REPORT INFORMATION
  Report Type: Spontaneous
  Country: US (occurrence: US)
  Receive Date: 20250525
  Receipt Date: 20250525
  Transmission Date: 20250716
  Serious: No
  Sender: ABBVIE
  Company Number: US-ABBVIE-6287501

PATIENT

DRUGS (2)
  1. FETZIMA [Suspect]
     Active Substance: LEVOMILNACIPRAN HYDROCHLORIDE
     Indication: Major depression
     Route: 048
     Dates: start: 2025
  2. BUSPIRONE [Concomitant]
     Active Substance: BUSPIRONE HYDROCHLORIDE
     Indication: Product used for unknown indication

REACTIONS (1)
  - Drug intolerance [Unknown]
